FAERS Safety Report 4958224-0 (Version None)
Quarter: 2006Q1

REPORT INFORMATION
  Report Type: 
  Country: None (occurrence: None)
  Receive Date: 20060330
  Receipt Date: 20060323
  Transmission Date: 20060701
  Serious: Yes (Other)
  Sender: FDA-Public Use
  Company Number: US-GLAXOSMITHKLINE-A0598836A

PATIENT
  Age: 47 Year
  Sex: Female

DRUGS (3)
  1. LAMICTAL [Suspect]
     Indication: BIPOLAR DISORDER
     Dosage: 300MG PER DAY
     Route: 048
     Dates: start: 20041101, end: 20060323
  2. SEROQUEL [Concomitant]
  3. MIRALAX [Concomitant]

REACTIONS (3)
  - ERYTHEMA [None]
  - SWELLING FACE [None]
  - THROAT TIGHTNESS [None]
